FAERS Safety Report 5933335-1 (Version None)
Quarter: 2008Q4

REPORT INFORMATION
  Report Type: 
  Country: None (occurrence: None)
  Receive Date: 20081028
  Receipt Date: 20081016
  Transmission Date: 20090506
  Serious: Yes (Other)
  Sender: FDA-Public Use
  Company Number: JP-PFIZER INC-2008088244

PATIENT
  Age: 61 Year
  Sex: Female

DRUGS (5)
  1. LITHIUM [Suspect]
     Dosage: DAILY DOSE:600MG-FREQ:FREQUENCY: DAILY
  2. FLUVOXAMINE MALEATE [Concomitant]
     Dosage: DAILY DOSE:150MG-FREQ:FREQUENCY: DAILY
  3. LEVOTHYROXINE SODIUM [Concomitant]
     Dosage: DAILY DOSE:.125MG-FREQ:FREQUENCY: DAILY
  4. VALPROATE SODIUM [Concomitant]
  5. CLONAZEPAM [Concomitant]

REACTIONS (2)
  - AUTOIMMUNE THYROIDITIS [None]
  - ENCEPHALOPATHY [None]
